FAERS Safety Report 14701415 (Version 4)
Quarter: 2018Q3

REPORT INFORMATION
  Report Type: Spontaneous
  Country: US (occurrence: US)
  Receive Date: 20180330
  Receipt Date: 20180719
  Transmission Date: 20181010
  Serious: No
  Sender: FDA-Public Use
  Company Number: US-PFIZER INC-2018131927

PATIENT
  Age: 23 Year
  Sex: Female
  Weight: 68.95 kg

DRUGS (4)
  1. DEPO?PROVERA [Suspect]
     Active Substance: MEDROXYPROGESTERONE ACETATE
     Dosage: UNK (SUBQ IN RIGHT ABDOMEN)
     Route: 058
     Dates: start: 20180305
  2. DEPO?PROVERA [Suspect]
     Active Substance: MEDROXYPROGESTERONE ACETATE
     Dosage: UNK (SUBQ IN RIGHT ABDOMEN)
     Route: 058
     Dates: start: 20171211
  3. DEPO?PROVERA [Suspect]
     Active Substance: MEDROXYPROGESTERONE ACETATE
     Indication: CONTRACEPTION
     Dosage: 104 MG, EVERY 12 WEEKS
     Route: 058
     Dates: start: 20160616
  4. DEPO?PROVERA [Suspect]
     Active Substance: MEDROXYPROGESTERONE ACETATE
     Dosage: UNK (SUBQ IN RIGHT ABDOMEN)
     Route: 058
     Dates: start: 20170920

REACTIONS (2)
  - Adnexa uteri pain [Not Recovered/Not Resolved]
  - Back pain [Not Recovered/Not Resolved]

NARRATIVE: CASE EVENT DATE: 20180305
